FAERS Safety Report 5858217-5 (Version None)
Quarter: 2008Q3

REPORT INFORMATION
  Report Type: 
  Country: None (occurrence: None)
  Receive Date: 20080826
  Receipt Date: 20080820
  Transmission Date: 20090109
  Serious: Yes (Hospitalization)
  Sender: FDA-Public Use
  Company Number: A0733448A

PATIENT
  Sex: Male
  Weight: 129.5 kg

DRUGS (21)
  1. AVANDIA [Suspect]
     Dosage: 4MG PER DAY
     Route: 048
     Dates: start: 20000601, end: 20070301
  2. GLYBURIDE [Concomitant]
  3. GLUCOPHAGE [Concomitant]
     Dates: start: 19890101, end: 20061201
  4. LOPRESSOR [Concomitant]
  5. LORAZEPAM [Concomitant]
  6. SIMVASTATIN [Concomitant]
  7. PLAVIX [Concomitant]
  8. LASIX [Concomitant]
  9. POTASSIUM CHLORIDE [Concomitant]
  10. PLENDIL [Concomitant]
  11. PREVACID [Concomitant]
  12. VASOTEC [Concomitant]
  13. TYLENOL [Concomitant]
  14. IMDUR [Concomitant]
  15. CARAFATE [Concomitant]
  16. IRON SULFATETHIAMIN COMPOUND TAB [Concomitant]
  17. FISH OIL [Concomitant]
  18. VITAMIN B-12 [Concomitant]
  19. NITRO-DUR [Concomitant]
  20. ASPIRIN [Concomitant]
  21. MICRONASE [Concomitant]
     Dates: end: 20061201

REACTIONS (4)
  - CARDIAC FAILURE CONGESTIVE [None]
  - CARDIOMEGALY [None]
  - CORONARY ARTERY DISEASE [None]
  - MYOCARDIAL INFARCTION [None]
